FAERS Safety Report 8233965-0 (Version None)
Quarter: 2012Q1

REPORT INFORMATION
  Report Type: 
  Country: None (occurrence: None)
  Receive Date: 20120322
  Receipt Date: 20120313
  Transmission Date: 20120608
  Serious: Yes (Hospitalization, Disabling, Other)
  Sender: FDA-Public Use
  Company Number: 2011SP017557

PATIENT
  Age: 31 Year
  Sex: Female
  Weight: 99.7913 kg

DRUGS (2)
  1. NUVARING [Suspect]
     Indication: CONTRACEPTION
     Dates: start: 20071009, end: 20071220
  2. LEVOTHYROXINE SODIUM [Concomitant]

REACTIONS (36)
  - FALL [None]
  - ATELECTASIS [None]
  - ENTEROCOCCAL INFECTION [None]
  - CONSTIPATION [None]
  - ACTIVITIES OF DAILY LIVING IMPAIRED [None]
  - HYPERCOAGULATION [None]
  - JOINT INJURY [None]
  - PULMONARY MASS [None]
  - SLEEP APNOEA SYNDROME [None]
  - DEEP VEIN THROMBOSIS [None]
  - LYMPHADENOPATHY [None]
  - CONTUSION [None]
  - PAIN [None]
  - ANAEMIA [None]
  - PANIC ATTACK [None]
  - VENA CAVA THROMBOSIS [None]
  - SUICIDAL IDEATION [None]
  - LYMPHOMA [None]
  - FLANK PAIN [None]
  - ULCER [None]
  - PLEURAL EFFUSION [None]
  - URINARY TRACT INFECTION [None]
  - EMOTIONAL DISORDER [None]
  - PARTNER STRESS [None]
  - DRUG SCREEN POSITIVE [None]
  - OVERDOSE [None]
  - ILIAC VEIN OCCLUSION [None]
  - MULTIPLE INJURIES [None]
  - CHEST PAIN [None]
  - INSOMNIA [None]
  - CELLULITIS [None]
  - OEDEMA [None]
  - DEPRESSION [None]
  - LUNG INFILTRATION [None]
  - GASTROOESOPHAGEAL REFLUX DISEASE [None]
  - HYPOKALAEMIA [None]
